FAERS Safety Report 23509712 (Version 1)
Quarter: 2024Q1

REPORT INFORMATION
  Report Type: Spontaneous
  Country: GB (occurrence: GB)
  Receive Date: 20240210
  Receipt Date: 20240210
  Transmission Date: 20240410
  Serious: Yes (Disabling, Other)
  Sender: FDA-Public Use
  Company Number: None

PATIENT
  Sex: Female
  Weight: 67 kg

DRUGS (4)
  1. KEPPRA [Suspect]
     Active Substance: LEVETIRACETAM
     Indication: Epilepsy
     Dosage: 1500 MILLIGRAM, 2X/DAY (BID)
     Dates: start: 20111001
  2. DOCUSATE [Concomitant]
     Active Substance: DOCUSATE
     Indication: Constipation
     Dosage: UNK
  3. OLANZAPINE [Concomitant]
     Active Substance: OLANZAPINE
     Indication: Adverse drug reaction
     Dosage: UNK
  4. SENNA LEAF [Concomitant]
     Active Substance: SENNA LEAF
     Indication: Constipation
     Dosage: UNK

REACTIONS (10)
  - Hallucination [Not Recovered/Not Resolved]
  - Abdominal distension [Not Recovered/Not Resolved]
  - Confusional state [Recovered/Resolved]
  - Nausea [Not Recovered/Not Resolved]
  - Eczema [Not Recovered/Not Resolved]
  - Vomiting [Recovering/Resolving]
  - Aggression [Not Recovered/Not Resolved]
  - Mood swings [Not Recovered/Not Resolved]
  - Amnesia [Not Recovered/Not Resolved]
  - Lethargy [Not Recovered/Not Resolved]

NARRATIVE: CASE EVENT DATE: 20150101
